FAERS Safety Report 23356869 (Version 2)
Quarter: 2024Q1

REPORT INFORMATION
  Report Type: Report from Study
  Country: US (occurrence: US)
  Receive Date: 20240102
  Receipt Date: 20240311
  Transmission Date: 20240410
  Serious: Yes (Other)
  Sender: FDA-Public Use
  Company Number: US-002147023-NVSC2023US276675

PATIENT
  Sex: Male

DRUGS (1)
  1. LEQVIO [Suspect]
     Active Substance: INCLISIRAN SODIUM
     Indication: Product used for unknown indication
     Dosage: UNK
     Route: 058

REACTIONS (7)
  - Myocardial infarction [Recovering/Resolving]
  - COVID-19 [Recovering/Resolving]
  - Malaise [Recovering/Resolving]
  - Back injury [Unknown]
  - Low density lipoprotein decreased [Unknown]
  - Blood cholesterol decreased [Unknown]
  - Blood triglycerides increased [Unknown]
